FAERS Safety Report 14540246 (Version 1)
Quarter: 2018Q1

REPORT INFORMATION
  Report Type: Spontaneous
  Country: JP (occurrence: JP)
  Receive Date: 20180216
  Receipt Date: 20180216
  Transmission Date: 20180509
  Serious: Yes (Hospitalization)
  Sender: FDA-Public Use
  Company Number: JP-JNJFOC-20180138646

PATIENT
  Age: 81 Year
  Sex: Female

DRUGS (3)
  1. OLANZAPINE. [Concomitant]
     Active Substance: OLANZAPINE
     Route: 065
  2. REMINYL [Suspect]
     Active Substance: GALANTAMINE
     Indication: DEMENTIA ALZHEIMER^S TYPE
     Route: 048
  3. CLYSTER [Suspect]
     Active Substance: GLYCERIN\THYMOL
     Indication: CONSTIPATION
     Route: 065

REACTIONS (2)
  - Diarrhoea [Recovered/Resolved]
  - Hospitalisation [Unknown]
